FAERS Safety Report 8544203 (Version 6)
Quarter: 2014Q2

REPORT INFORMATION
  Report Type: Report from Study
  Country: CA (occurrence: CA)
  Receive Date: 20120503
  Receipt Date: 20140624
  Transmission Date: 20141212
  Serious: Yes (Hospitalization, Other)
  Sender: FDA-Public Use
  Company Number: PHHY2012CA005896

PATIENT
  Age: 79 Year
  Sex: Female

DRUGS (4)
  1. AFINITOR [Suspect]
     Indication: PANCREATIC CARCINOMA
     Dosage: 10 MG, QD
     Route: 048
     Dates: start: 20111109, end: 20120114
  2. AFINITOR [Suspect]
     Dosage: 5 MG, QD
     Route: 048
     Dates: start: 20120406
  3. AFINITOR [Suspect]
     Dosage: 5 MG, UNK
     Route: 048
     Dates: start: 20111118
  4. SANDOSTATIN LAR [Suspect]
     Indication: PANCREATIC CARCINOMA
     Dosage: 20 MG, EVERY 4 WEEKS
     Route: 030
     Dates: start: 20110715

REACTIONS (10)
  - Intestinal obstruction [Unknown]
  - Rash generalised [Unknown]
  - Rash pruritic [Unknown]
  - Rash macular [Unknown]
  - Dry skin [Unknown]
  - Bursitis [Unknown]
  - Dizziness [Unknown]
  - Joint swelling [Unknown]
  - Peripheral swelling [Unknown]
  - Asthenia [Unknown]
